FAERS Safety Report 21494110 (Version 4)
Quarter: 2022Q4

REPORT INFORMATION
  Report Type: Spontaneous
  Country: US (occurrence: US)
  Receive Date: 20221021
  Receipt Date: 20221129
  Transmission Date: 20230113
  Serious: Yes (Hospitalization, Other)
  Sender: FDA-Public Use
  Company Number: US-MALLINCKRODT-T202205447

PATIENT
  Sex: Female
  Weight: 6 kg

DRUGS (5)
  1. H.P. ACTHAR [Suspect]
     Active Substance: CORTICOTROPIN
     Indication: Infantile spasms
     Dosage: 0.6 MILLILITER (48 UNITS), QD
     Route: 065
     Dates: start: 202209
  2. H.P. ACTHAR [Suspect]
     Active Substance: CORTICOTROPIN
     Dosage: 0.6 MILLILITER, EVERY OTHER DAY
     Route: 030
     Dates: start: 20221006
  3. KEPPRA [Concomitant]
     Active Substance: LEVETIRACETAM
     Indication: Product used for unknown indication
     Dosage: 500 MG/5ML VIAL
     Route: 065
  4. KEPPRA [Concomitant]
     Active Substance: LEVETIRACETAM
     Dosage: 2 MILLILITER, BID (DOSE INCREASED)
     Route: 065
  5. SABRIL [Concomitant]
     Active Substance: VIGABATRIN
     Indication: Product used for unknown indication
     Dosage: UNK
     Route: 065

REACTIONS (6)
  - Infantile spasms [Not Recovered/Not Resolved]
  - Condition aggravated [Not Recovered/Not Resolved]
  - Seizure [Not Recovered/Not Resolved]
  - Crying [Unknown]
  - Nasopharyngitis [Unknown]
  - Drug ineffective [Not Recovered/Not Resolved]

NARRATIVE: CASE EVENT DATE: 20220101
